FAERS Safety Report 24130014 (Version 2)
Quarter: 2024Q4

REPORT INFORMATION
  Report Type: Spontaneous
  Country: US (occurrence: US)
  Receive Date: 20240724
  Receipt Date: 20241213
  Transmission Date: 20250115
  Serious: No
  Sender: ELI LILLY AND COMPANY
  Company Number: US-ELI_LILLY_AND_COMPANY-US202407011197

PATIENT
  Age: 34 Year
  Sex: Female
  Weight: 64.8 kg

DRUGS (5)
  1. EMGALITY [Suspect]
     Active Substance: GALCANEZUMAB-GNLM
     Indication: Migraine prophylaxis
     Dosage: 100 MG, MONTHLY (1/M)
     Route: 058
     Dates: start: 2022, end: 20240218
  2. NURTEC ODT [Concomitant]
     Active Substance: RIMEGEPANT SULFATE
     Indication: Migraine
     Dosage: 75 MG, OTHER (AS NEEDED)
     Route: 048
     Dates: start: 2022
  3. ASPIRIN [Concomitant]
     Active Substance: ASPIRIN
     Indication: Pain management
     Dosage: 81 MG, DAILY
     Route: 048
     Dates: start: 2019
  4. PROPRANOLOL [Concomitant]
     Active Substance: PROPRANOLOL HYDROCHLORIDE
     Indication: Palpitations
     Dosage: 40 MG, DAILY
     Route: 048
     Dates: start: 2022, end: 202402
  5. NORETHINDRONE ACETATE [Concomitant]
     Active Substance: NORETHINDRONE ACETATE
     Indication: Contraception
     Dosage: 0.35 MG, DAILY
     Route: 048
     Dates: start: 2021, end: 202402

REACTIONS (3)
  - Anxiety [Not Recovered/Not Resolved]
  - Underdose [Unknown]
  - Maternal exposure during pregnancy [Unknown]

NARRATIVE: CASE EVENT DATE: 20230101
